FAERS Safety Report 4601969-2 (Version None)
Quarter: 2005Q1

REPORT INFORMATION
  Report Type: 
  Country: None (occurrence: None)
  Receive Date: 20050131
  Receipt Date: 20041001
  Transmission Date: 20050727
  Serious: Yes (Other)
  Sender: FDA-Public Use
  Company Number: 140233USA

PATIENT
  Age: 80 Year
  Sex: Female
  Weight: 86.1834 kg

DRUGS (2)
  1. AMOXICILLIN AND CLAVULANATE POTASSIUM [Suspect]
     Indication: INFECTION
     Dates: start: 20040809, end: 20040821
  2. COREG [Concomitant]

REACTIONS (5)
  - EYE OEDEMA [None]
  - NAUSEA [None]
  - RASH [None]
  - RASH PRURITIC [None]
  - THROAT TIGHTNESS [None]
